FAERS Safety Report 6039045-7 (Version None)
Quarter: 2009Q1

REPORT INFORMATION
  Report Type: 
  Country: None (occurrence: None)
  Receive Date: 20090115
  Receipt Date: 20090107
  Transmission Date: 20090719
  Serious: Yes (Death, Life-Threatening)
  Sender: FDA-Public Use
  Company Number: JP-ABBOTT-09P-087-0497535-00

PATIENT
  Age: 80 Year
  Sex: Male

DRUGS (5)
  1. LEUPROLIDE ACETATE [Suspect]
     Indication: PROSTATE CANCER STAGE II
     Route: 058
     Dates: start: 20060323, end: 20070126
  2. LEUPROLIDE ACETATE [Suspect]
     Route: 058
     Dates: start: 20070126, end: 20070126
  3. LEUPROLIDE ACETATE [Suspect]
     Indication: PROSTATE CANCER STAGE II
     Dates: start: 20050624, end: 20060323
  4. CASODEX [Concomitant]
     Indication: PROSTATE CANCER STAGE II
     Dates: start: 20050610, end: 20070219
  5. WARFARIN SODIUM [Concomitant]
     Indication: CEREBROVASCULAR ACCIDENT PROPHYLAXIS
     Dates: end: 20070219

REACTIONS (1)
  - AORTIC ANEURYSM RUPTURE [None]
